FAERS Safety Report 8609363-4 (Version None)
Quarter: 2012Q3

REPORT INFORMATION
  Report Type: 
  Country: None (occurrence: None)
  Receive Date: 20120821
  Receipt Date: 20120814
  Transmission Date: 20120928
  Serious: Yes (Other)
  Sender: FDA-Public Use
  Company Number: US-ABBOTT-11P-163-0718729-00

PATIENT
  Sex: Female
  Weight: 88.53 kg

DRUGS (17)
  1. FLUTICASONE PROPIONATE [Concomitant]
     Indication: PRODUCT USED FOR UNKNOWN INDICATION
  2. ASACOL [Concomitant]
     Indication: PRODUCT USED FOR UNKNOWN INDICATION
  3. ZEGRATEN [Concomitant]
     Indication: PRODUCT USED FOR UNKNOWN INDICATION
  4. ZYRTEC [Concomitant]
     Indication: PRODUCT USED FOR UNKNOWN INDICATION
  5. ASPIRIN [Concomitant]
     Indication: PRODUCT USED FOR UNKNOWN INDICATION
  6. MILK THISTLE [Concomitant]
     Indication: SUPPLEMENTATION THERAPY
  7. POTASSIUM [Concomitant]
     Indication: PRODUCT USED FOR UNKNOWN INDICATION
  8. TOPROL-XL [Concomitant]
     Indication: PRODUCT USED FOR UNKNOWN INDICATION
  9. TORSIMIDE [Concomitant]
     Indication: PRODUCT USED FOR UNKNOWN INDICATION
  10. ALOE VERA JUICE WITH CHOLOREA SLIVER [Concomitant]
     Indication: SUPPLEMENTATION THERAPY
     Dosage: JUICE
  11. GARLIC [Concomitant]
     Indication: SUPPLEMENTATION THERAPY
  12. VITAMIN B COMPLEX CAP [Concomitant]
     Indication: VITAMIN SUPPLEMENTATION
  13. HUMIRA [Suspect]
     Indication: CROHN'S DISEASE
     Dates: start: 20090101
  14. BIOTIN [Concomitant]
     Indication: PRODUCT USED FOR UNKNOWN INDICATION
  15. MULTIPLE VITAMINS [Concomitant]
     Indication: VITAMIN SUPPLEMENTATION
  16. NEXIUM [Concomitant]
     Indication: PRODUCT USED FOR UNKNOWN INDICATION
  17. CINNAMON [Concomitant]
     Indication: SUPPLEMENTATION THERAPY

REACTIONS (8)
  - PULMONARY MASS [None]
  - INJECTION SITE ERYTHEMA [None]
  - PNEUMONIA [None]
  - PYREXIA [None]
  - KNEE ARTHROPLASTY [None]
  - NASOPHARYNGITIS [None]
  - SPUTUM DISCOLOURED [None]
  - BRONCHIAL DISORDER [None]
